FAERS Safety Report 23043578 (Version 2)
Quarter: 2024Q1

REPORT INFORMATION
  Report Type: Spontaneous
  Country: US (occurrence: US)
  Receive Date: 20231009
  Receipt Date: 20240205
  Transmission Date: 20240410
  Serious: Yes (Other)
  Sender: FDA-Public Use
  Company Number: US-BRISTOL-MYERS SQUIBB COMPANY-2023-142643

PATIENT
  Age: 87 Year
  Sex: Male

DRUGS (1)
  1. REVLIMID [Suspect]
     Active Substance: LENALIDOMIDE
     Indication: Mantle cell lymphoma
     Dosage: FREQUENCY: EVERY OTHER DAY FOR 21 DAYS ON THEN 7 DAYS OFF (EVERY DAY ON MONDAY, WEDNESDAY, FRIDAY FO
     Route: 048
     Dates: start: 202210

REACTIONS (4)
  - Immunodeficiency [Unknown]
  - Full blood count decreased [Unknown]
  - Off label use [Unknown]
  - Product supply issue [Unknown]
